FAERS Safety Report 4826121-7 (Version None)
Quarter: 2005Q4

REPORT INFORMATION
  Report Type: 
  Country: None (occurrence: None)
  Receive Date: 20051109
  Receipt Date: 20051101
  Transmission Date: 20060501
  Serious: Yes (Other)
  Sender: FDA-Public Use
  Company Number: 005945

PATIENT
  Sex: Female

DRUGS (2)
  1. CLARAVIS [Suspect]
     Dosage: 40 MG, QD, ORAL
     Route: 048
     Dates: start: 20041220, end: 20050801
  2. CLARAVIS [Suspect]
     Dosage: 20 MG, QHS, ORAL
     Route: 048
     Dates: start: 20041201, end: 20050801

REACTIONS (1)
  - UNINTENDED PREGNANCY [None]
